FAERS Safety Report 12830359 (Version 2)
Quarter: 2017Q3

REPORT INFORMATION
  Report Type: Spontaneous
  Country: US (occurrence: US)
  Receive Date: 20161007
  Receipt Date: 20170928
  Transmission Date: 20171127
  Serious: No
  Sender: FDA-Public Use
  Company Number: US-SA-2016SA173291

PATIENT
  Age: 33 Year
  Sex: Female

DRUGS (8)
  1. AUBAGIO [Suspect]
     Active Substance: TERIFLUNOMIDE
     Indication: MULTIPLE SCLEROSIS
     Route: 048
     Dates: start: 20160909
  2. COGENTIN [Concomitant]
     Active Substance: BENZTROPINE MESYLATE
  3. VENLAFAXINE [Concomitant]
     Active Substance: VENLAFAXINE HYDROCHLORIDE
  4. AMPYRA [Concomitant]
     Active Substance: DALFAMPRIDINE
  5. TOPAMAX [Concomitant]
     Active Substance: TOPIRAMATE
  6. XANAX [Concomitant]
     Active Substance: ALPRAZOLAM
  7. IMITREX [Concomitant]
     Active Substance: SUMATRIPTAN SUCCINATE
  8. PRIMIDONE. [Concomitant]
     Active Substance: PRIMIDONE

REACTIONS (3)
  - Dysgeusia [Unknown]
  - Headache [Unknown]
  - Nausea [Unknown]

NARRATIVE: CASE EVENT DATE: 20160909
